FAERS Safety Report 25910218 (Version 2)
Quarter: 2025Q4

REPORT INFORMATION
  Report Type: Spontaneous
  Country: JP (occurrence: JP)
  Receive Date: 20251012
  Receipt Date: 20251104
  Transmission Date: 20260118
  Serious: Yes (Hospitalization, Other)
  Sender: AMGEN
  Company Number: JP-DSJP-DS-2025-168391-

PATIENT
  Age: 79 Year
  Sex: Female

DRUGS (1)
  1. DENOSUMAB [Suspect]
     Active Substance: DENOSUMAB
     Indication: Metastases to spine
     Dosage: UNK, 16 DOSES
     Route: 065

REACTIONS (2)
  - Spinal fracture [Recovering/Resolving]
  - Osteonecrosis of jaw [Unknown]
